FAERS Safety Report 21249257 (Version 1)
Quarter: 2022Q3

REPORT INFORMATION
  Report Type: Spontaneous
  Country: US (occurrence: US)
  Receive Date: 20220824
  Receipt Date: 20220824
  Transmission Date: 20221027
  Serious: No
  Sender: FDA-Public Use
  Company Number: US-BRISTOL-MYERS SQUIBB COMPANY-2022-092720

PATIENT
  Age: 73 Year
  Sex: Female

DRUGS (1)
  1. REVLIMID [Suspect]
     Active Substance: LENALIDOMIDE
     Indication: Plasma cell myeloma
     Dosage: FREQ : DAILY FOR 14 DAYS
     Route: 048
     Dates: start: 20220615

REACTIONS (8)
  - Lymphoedema [Unknown]
  - Blood bilirubin increased [Unknown]
  - Peripheral swelling [Unknown]
  - Trichorrhexis [Unknown]
  - Alopecia [Unknown]
  - Herpes zoster [Unknown]
  - Rash [Unknown]
  - Pruritus [Unknown]
